FAERS Safety Report 9241006 (Version 1)
Quarter: 2013Q2

REPORT INFORMATION
  Report Type: Spontaneous
  Country: US (occurrence: US)
  Receive Date: 20130419
  Receipt Date: 20130419
  Transmission Date: 20140414
  Serious: No
  Sender: FDA-Public Use
  Company Number: US-009507513-1304USA007886

PATIENT
  Sex: Male

DRUGS (2)
  1. NITRO-DUR [Suspect]
     Dosage: 0.4 MG, UNK
     Route: 062
  2. NITRO-DUR [Suspect]
     Dosage: 0.8 MG, UNK
     Route: 062

REACTIONS (1)
  - Drug ineffective [Unknown]
